FAERS Safety Report 7069082-5 (Version None)
Quarter: 2010Q4

REPORT INFORMATION
  Report Type: 
  Country: None (occurrence: None)
  Receive Date: 20101028
  Receipt Date: 20101012
  Transmission Date: 20110411
  Serious: Yes (Other)
  Sender: FDA-Public Use
  Company Number: GB-PURDUE-USA-2010-0050870

PATIENT
  Age: 42 Year
  Sex: Male

DRUGS (8)
  1. TRAMADOL HCL [Suspect]
     Indication: BACK PAIN
  2. MORPHINE SULFATE [Suspect]
     Indication: BACK PAIN
     Dosage: UNK
  3. CODEINE [Suspect]
     Indication: BACK PAIN
  4. ASPIRIN [Concomitant]
     Indication: PRODUCT USED FOR UNKNOWN INDICATION
  5. PROPRANOLOL [Concomitant]
  6. OMEPRAZOLE [Concomitant]
  7. FLUOXETINE [Concomitant]
     Indication: PRODUCT USED FOR UNKNOWN INDICATION
  8. LOPERAMIDE [Concomitant]
     Indication: PRODUCT USED FOR UNKNOWN INDICATION

REACTIONS (1)
  - SECONDARY HYPOGONADISM [None]
